FAERS Safety Report 13663726 (Version 1)
Quarter: 2017Q2

REPORT INFORMATION
  Report Type: Spontaneous
  Country: US (occurrence: US)
  Receive Date: 20170616
  Receipt Date: 20170616
  Transmission Date: 20170830
  Serious: Yes (Life-Threatening, Hospitalization)
  Sender: FDA-Public Use
  Company Number: None

PATIENT
  Age: 76 Year
  Sex: Male
  Weight: 47.99 kg

DRUGS (1)
  1. ABIRATERONE [Suspect]
     Active Substance: ABIRATERONE
     Indication: PROSTATE CANCER
     Route: 048
     Dates: start: 20170410, end: 20170419

REACTIONS (5)
  - Cardiac failure [None]
  - Angina pectoris [None]
  - Shock [None]
  - Toxicity to various agents [None]
  - Liver injury [None]

NARRATIVE: CASE EVENT DATE: 20170419
